FAERS Safety Report 8909977 (Version 2)
Quarter: 2014Q2

REPORT INFORMATION
  Report Type: Spontaneous
  Country: US (occurrence: US)
  Receive Date: 20121115
  Receipt Date: 20131024
  Transmission Date: 20141212
  Serious: Yes (Other)
  Sender: FDA-Public Use
  Company Number: US-PFIZER INC-2012281482

PATIENT
  Sex: Female

DRUGS (1)
  1. PREMPRO [Suspect]
     Indication: POSTMENOPAUSE
     Dosage: 0.3/1.5 MG, 1X/DAY
     Route: 048
     Dates: start: 20121029

REACTIONS (1)
  - Vaginal haemorrhage [Recovered/Resolved]
